FAERS Safety Report 5380294-9 (Version None)
Quarter: 2007Q3

REPORT INFORMATION
  Report Type: 
  Country: None (occurrence: None)
  Receive Date: 20070706
  Receipt Date: 20070607
  Transmission Date: 20080115
  Serious: Yes (Hospitalization, Disabling, Other)
  Sender: FDA-Public Use
  Company Number: FR-PFIZER INC-2007032136

PATIENT
  Sex: Female
  Weight: 75 kg

DRUGS (1)
  1. SALAZOPYRINE [Suspect]
     Indication: CROHN'S DISEASE
     Route: 048
     Dates: start: 20061201, end: 20070320

REACTIONS (18)
  - BACK PAIN [None]
  - BENCE JONES PROTEIN URINE PRESENT [None]
  - C-REACTIVE PROTEIN INCREASED [None]
  - DEPRESSION [None]
  - ELECTRIC SHOCK [None]
  - GAMMA-GLUTAMYLTRANSFERASE INCREASED [None]
  - HAEMORRHAGE [None]
  - LIBIDO DECREASED [None]
  - LIVER DISORDER [None]
  - NEUROPATHY PERIPHERAL [None]
  - PLATELET COUNT DECREASED [None]
  - POLYNEUROPATHY [None]
  - PROTEINURIA [None]
  - PYREXIA [None]
  - RED BLOOD CELL SEDIMENTATION RATE INCREASED [None]
  - TRANSAMINASES INCREASED [None]
  - URINARY TRACT INFECTION [None]
  - WHITE BLOOD CELL DISORDER [None]
